FAERS Safety Report 4875974-5 (Version None)
Quarter: 2005Q4

REPORT INFORMATION
  Report Type: 
  Country: None (occurrence: None)
  Receive Date: 20051206
  Receipt Date: 20050824
  Transmission Date: 20060501
  Serious: Yes (Hospitalization)
  Sender: FDA-Public Use
  Company Number: USA0506100153

PATIENT
  Age: 72 Year
  Sex: Male

DRUGS (9)
  1. CYMBALTA [Suspect]
     Dosage: 60 MG
  2. PROPAFENONE HCL [Concomitant]
  3. METOPROLOL [Concomitant]
  4. LASIX (FUROSEMIDE /0032601/) [Concomitant]
  5. ASPIRIN [Concomitant]
  6. LOMOTIL [Concomitant]
  7. MEGACE [Concomitant]
  8. POTASSIUM CHLORIDE [Concomitant]
  9. ZANTAC [Concomitant]

REACTIONS (2)
  - DECREASED APPETITE [None]
  - DYSPHAGIA [None]
